FAERS Safety Report 15461847 (Version 2)
Quarter: 2019Q1

REPORT INFORMATION
  Report Type: Report from Study
  Country: US (occurrence: US)
  Receive Date: 20181003
  Receipt Date: 20190103
  Transmission Date: 20190417
  Serious: No
  Sender: FDA-Public Use
  Company Number: PHEH2018US040403

PATIENT
  Sex: Female

DRUGS (1)
  1. GILENYA [Suspect]
     Active Substance: FINGOLIMOD HYDROCHLORIDE
     Indication: MULTIPLE SCLEROSIS
     Dosage: 0.5 MG, QD
     Route: 048
     Dates: start: 20180625

REACTIONS (4)
  - Panic attack [Unknown]
  - Headache [Unknown]
  - Anxiety [Unknown]
  - Intraocular pressure increased [Recovered/Resolved]
